FAERS Safety Report 9246038 (Version 3)
Quarter: 2014Q1

REPORT INFORMATION
  Report Type: Report from Study
  Country: US (occurrence: US)
  Receive Date: 20130422
  Receipt Date: 20140120
  Transmission Date: 20141002
  Serious: Yes (Hospitalization)
  Sender: FDA-Public Use
  Company Number: US-ACTELION-A-US2013-81993

PATIENT
  Age: 42 Year
  Sex: Female

DRUGS (6)
  1. VELETRI [Suspect]
     Indication: PULMONARY ARTERIAL HYPERTENSION
     Dosage: 53 NG/KG, PER MIN
     Route: 042
     Dates: start: 20130519
  2. VELETRI [Suspect]
     Dosage: 92 NG/KG, PER MIN
     Route: 042
     Dates: start: 20101103
  3. VELETRI [Suspect]
     Dosage: 50 NG/KG, PER MIN
     Route: 042
  4. TRACLEER [Concomitant]
     Indication: PULMONARY ARTERIAL HYPERTENSION
     Dosage: UNK
     Route: 048
  5. SILDENAFIL [Concomitant]
  6. COUMADIN [Concomitant]

REACTIONS (7)
  - Cellulitis [Unknown]
  - Visual impairment [Unknown]
  - Fall [Unknown]
  - Chest injury [Unknown]
  - Pulmonary arterial hypertension [Unknown]
  - Oedema [Unknown]
  - Fluid retention [Unknown]
